FAERS Safety Report 24378193 (Version 1)
Quarter: 2024Q3

REPORT INFORMATION
  Report Type: Spontaneous
  Country: CH (occurrence: CH)
  Receive Date: 20240930
  Receipt Date: 20240930
  Transmission Date: 20241016
  Serious: Yes (Hospitalization, Other)
  Sender: EPIC PHARM
  Company Number: CH-EPICPHARMA-CH-2024EPCLIT01153

PATIENT
  Age: 65 Year
  Sex: Female

DRUGS (1)
  1. MEPERIDINE [Suspect]
     Active Substance: MEPERIDINE
     Indication: Pain
     Route: 058

REACTIONS (1)
  - Dystrophic calcification [Recovered/Resolved]
